FAERS Safety Report 10930660 (Version 1)
Quarter: 2015Q1

REPORT INFORMATION
  Report Type: Spontaneous
  Country: US (occurrence: None)
  Receive Date: 20150318
  Receipt Date: 20150318
  Transmission Date: 20150721
  Serious: Yes (Hospitalization)
  Sender: FDA-Public Use
  Company Number: None

PATIENT
  Age: 11 Year
  Sex: Female
  Weight: 42.6 kg

DRUGS (8)
  1. LIDOCAINE-PRILOCAINE (EMLA) [Concomitant]
  2. POLYETHYLENE GLYCOL (GLYCOLAX/MIRALAX) [Concomitant]
  3. MEGESTROL (MEGACE) [Concomitant]
  4. ACETAMINOPHEN (Q-PAP ORAL) [Concomitant]
  5. ONDANSETRON (ZOFRAN) [Concomitant]
  6. ETOPOSIDE. [Suspect]
     Active Substance: ETOPOSIDE
     Indication: OSTEOSARCOMA
     Route: 042
     Dates: start: 20150215
  7. SULFAMETHOXAZOLE-TRIMETHOPRIM (BACTRIM,SEPTRA) [Concomitant]
  8. IFOSFAMIDE. [Suspect]
     Active Substance: IFOSFAMIDE
     Indication: OSTEOSARCOMA
     Dates: start: 20150215

REACTIONS (9)
  - Fanconi syndrome [None]
  - Blood phosphorus decreased [None]
  - Blood magnesium decreased [None]
  - Febrile neutropenia [None]
  - Blood potassium decreased [None]
  - Fatigue [None]
  - Anaemia [None]
  - Hypophagia [None]
  - Thrombocytopenia [None]

NARRATIVE: CASE EVENT DATE: 20150305
